FAERS Safety Report 6519174-1 (Version None)
Quarter: 2009Q4

REPORT INFORMATION
  Report Type: 
  Country: None (occurrence: None)
  Receive Date: 20091228
  Receipt Date: 20091217
  Transmission Date: 20100525
  Serious: Yes (Hospitalization)
  Sender: FDA-Public Use
  Company Number: US-SANOFI-AVENTIS-2009SA009835

PATIENT
  Age: 85 Year
  Sex: Male

DRUGS (15)
  1. PLAVIX [Suspect]
     Indication: STENT PLACEMENT
     Route: 048
  2. PLAVIX [Suspect]
     Route: 048
     Dates: start: 20060101
  3. ZANTAC [Concomitant]
  4. COQ10 [Concomitant]
  5. B-50 [Concomitant]
  6. CRESTOR [Concomitant]
  7. LEVOTHYROXINE SODIUM [Concomitant]
  8. LISINOPRIL [Concomitant]
  9. NIFEDIPINE [Concomitant]
  10. NIACIN [Concomitant]
  11. ASPIRIN [Concomitant]
  12. TERAZOSIN HCL [Concomitant]
  13. VITAMINS [Concomitant]
  14. CALCIUM/VITAMIN D [Concomitant]
  15. PRILOSEC [Concomitant]
     Dates: end: 20091201

REACTIONS (5)
  - BODY TEMPERATURE INCREASED [None]
  - DEHYDRATION [None]
  - FAECES DISCOLOURED [None]
  - INAPPROPRIATE SCHEDULE OF DRUG ADMINISTRATION [None]
  - PNEUMONIA [None]
